FAERS Safety Report 5941683-4 (Version None)
Quarter: 2008Q4

REPORT INFORMATION
  Report Type: 
  Country: None (occurrence: None)
  Receive Date: 20081104
  Receipt Date: 20081104
  Transmission Date: 20090506
  Serious: Yes (Other)
  Sender: FDA-Public Use
  Company Number: None

PATIENT
  Age: 53 Year
  Sex: Female

DRUGS (1)
  1. VARENICLINE [Suspect]
     Dosage: 1 MG EVERY DAY PO
     Route: 048
     Dates: start: 20080708, end: 20080820

REACTIONS (1)
  - DEPRESSION [None]
